FAERS Safety Report 8869183 (Version 1)
Quarter: 2012Q4

REPORT INFORMATION
  Report Type: 
  Country: US (occurrence: US)
  Receive Date: 20121023
  Receipt Date: 20121023
  Transmission Date: 20130627
  Serious: No
  Sender: FDA-Public Use
  Company Number: US-AMGEN-USASP2012053518

PATIENT
  Age: 25 Year
  Sex: Female

DRUGS (2)
  1. ENBREL [Suspect]
     Indication: RHEUMATOID ARTHRITIS
     Dosage: 50 mg, qwk
     Route: 058
     Dates: start: 20111130, end: 20120715
  2. HUMIRA [Concomitant]
     Dosage: UNK

REACTIONS (1)
  - Rheumatoid arthritis [Recovered/Resolved]
